FAERS Safety Report 18284828 (Version 1)
Quarter: 2020Q3

REPORT INFORMATION
  Report Type: Spontaneous
  Country: ME (occurrence: ME)
  Receive Date: 20200918
  Receipt Date: 20200918
  Transmission Date: 20201103
  Serious: Yes (Other)
  Sender: FDA-Public Use
  Company Number: NVSC2020ME251518

PATIENT
  Sex: Male

DRUGS (4)
  1. ZOMETA [Suspect]
     Active Substance: ZOLEDRONIC ACID
     Dosage: UNK (3 CYCLE)
     Route: 065
     Dates: start: 201906
  2. ZOMETA [Suspect]
     Active Substance: ZOLEDRONIC ACID
     Indication: LYMPHADENOPATHY
     Dosage: UNK (2 CYCLE)
     Route: 065
     Dates: start: 201905
  3. ZOMETA [Suspect]
     Active Substance: ZOLEDRONIC ACID
     Indication: METASTATIC MALIGNANT MELANOMA
     Dosage: UNK
     Route: 065
  4. ZOMETA [Suspect]
     Active Substance: ZOLEDRONIC ACID
     Dosage: UNK
     Route: 065
     Dates: start: 201907

REACTIONS (7)
  - Metastases to lymph nodes [Unknown]
  - Metastases to bone [Unknown]
  - Disease progression [Unknown]
  - Blood urea abnormal [Unknown]
  - Transaminases increased [Recovering/Resolving]
  - Blood creatinine abnormal [Unknown]
  - Product use in unapproved indication [Unknown]

NARRATIVE: CASE EVENT DATE: 20190702
